FAERS Safety Report 8245701 (Version 4)
Quarter: 2013Q1

REPORT INFORMATION
  Report Type: Report from Study
  Country: TW (occurrence: TW)
  Receive Date: 20111115
  Receipt Date: 20130228
  Transmission Date: 20140127
  Serious: Yes (Hospitalization)
  Sender: FDA-Public Use
  Company Number: TW-GLAXOSMITHKLINE-Z0012694A

PATIENT
  Age: 49 Year
  Sex: Female
  Weight: 66.6 kg

DRUGS (3)
  1. PAZOPANIB [Suspect]
     Indication: OVARIAN CANCER
     Dosage: 800MG PER DAY
     Route: 048
     Dates: start: 20101201, end: 20111013
  2. ALLEGRA [Concomitant]
  3. WARFARIN [Concomitant]

REACTIONS (1)
  - Thrombosis in device [Recovered/Resolved]
